FAERS Safety Report 25769121 (Version 3)
Quarter: 2025Q3

REPORT INFORMATION
  Report Type: Spontaneous
  Country: JP (occurrence: JP)
  Receive Date: 20250905
  Receipt Date: 20250917
  Transmission Date: 20251020
  Serious: Yes (Other)
  Sender: AMGEN
  Company Number: JP-AMGEN-JPNSP2025176548

PATIENT
  Age: 57 Year
  Sex: Female

DRUGS (7)
  1. IMDELLTRA [Suspect]
     Active Substance: TARLATAMAB-DLLE
     Indication: Small cell lung cancer extensive stage
     Route: 040
     Dates: start: 20250522
  2. IMDELLTRA [Suspect]
     Active Substance: TARLATAMAB-DLLE
     Route: 040
  3. IMDELLTRA [Suspect]
     Active Substance: TARLATAMAB-DLLE
     Route: 040
  4. CARBOPLATIN [Concomitant]
     Active Substance: CARBOPLATIN
     Indication: Small cell lung cancer extensive stage
  5. ETOPOSIDE [Concomitant]
     Active Substance: ETOPOSIDE
     Indication: Small cell lung cancer extensive stage
  6. DURVALUMAB [Concomitant]
     Active Substance: DURVALUMAB
     Indication: Small cell lung cancer extensive stage
  7. AMRUBICIN [Concomitant]
     Active Substance: AMRUBICIN
     Indication: Small cell lung cancer extensive stage

REACTIONS (7)
  - Tumour pseudoprogression [Unknown]
  - Metastases to pelvis [Unknown]
  - Cytokine release syndrome [Recovering/Resolving]
  - Small cell lung cancer [Unknown]
  - Spinal pain [Unknown]
  - Bone pain [Recovered/Resolved]
  - Pleural effusion [Recovering/Resolving]
